FAERS Safety Report 5522448-4 (Version None)
Quarter: 2007Q4

REPORT INFORMATION
  Report Type: 
  Country: None (occurrence: None)
  Receive Date: 20071120
  Receipt Date: 20071109
  Transmission Date: 20080405
  Serious: Yes (Death, Hospitalization)
  Sender: FDA-Public Use
  Company Number: US-SANOFI-SYNTHELABO-A03200705331

PATIENT
  Sex: Male
  Weight: 72.6 kg

DRUGS (13)
  1. COUMADIN [Concomitant]
     Dosage: UNK
     Route: 048
     Dates: end: 20061201
  2. PLAVIX [Suspect]
     Indication: ATRIAL FIBRILLATION
     Route: 048
     Dates: start: 20050201
  3. PLAVIX [Suspect]
     Indication: CEREBROVASCULAR ACCIDENT
     Route: 048
     Dates: start: 20050201
  4. TYLENOL [Concomitant]
     Dosage: 1 OR 2 TABLETS AT BEDTIME AS NEEDED
     Route: 048
  5. MUCINEX [Concomitant]
     Route: 048
  6. ASPIRIN [Concomitant]
     Route: 048
  7. PLENDIL [Concomitant]
     Route: 048
  8. SYNTHROID [Concomitant]
     Route: 048
  9. TOPROL-XL [Concomitant]
     Route: 048
     Dates: start: 20050601
  10. LISINOPRIL [Concomitant]
     Route: 048
     Dates: start: 20050201
  11. KLOR-CON [Concomitant]
     Route: 048
     Dates: start: 20050201
  12. LIPITOR [Concomitant]
     Route: 048
     Dates: start: 20050101
  13. ISOSORBIDE DINITRATE [Concomitant]
     Route: 048
     Dates: start: 20050101

REACTIONS (1)
  - CEREBROVASCULAR ACCIDENT [None]
